FAERS Safety Report 5192730-1 (Version None)
Quarter: 2006Q4

REPORT INFORMATION
  Report Type: 
  Country: None (occurrence: None)
  Receive Date: 20061228
  Receipt Date: 20061219
  Transmission Date: 20070319
  Serious: Yes (Hospitalization)
  Sender: FDA-Public Use
  Company Number: PHBS2006JP19526

PATIENT
  Age: 71 Year
  Sex: Male

DRUGS (6)
  1. FASTIC [Suspect]
     Indication: DIABETES MELLITUS
     Dosage: 180 MG/DAY
     Route: 048
     Dates: start: 20060103, end: 20060925
  2. OLMETEC [Suspect]
     Dosage: 20 MG/DAY
     Route: 048
     Dates: start: 20060209, end: 20061205
  3. MOBIC [Suspect]
     Dosage: 10 MG/DAY
     Route: 048
     Dates: start: 20060103, end: 20060925
  4. LIPIDIL [Suspect]
     Dosage: 40 MG/DAY
     Route: 048
     Dates: start: 20060301, end: 20060925
  5. ARTIST [Concomitant]
     Dosage: 10 MG, UNK
     Dates: start: 20060209
  6. CALBLOCK [Concomitant]
     Dosage: 16 MG, UNK
     Dates: start: 20060721

REACTIONS (1)
  - INTERSTITIAL LUNG DISEASE [None]
